FAERS Safety Report 22022814 (Version 5)
Quarter: 2023Q2

REPORT INFORMATION
  Report Type: Report from Study
  Country: NL (occurrence: NL)
  Receive Date: 20230222
  Receipt Date: 20230407
  Transmission Date: 20230722
  Serious: Yes (Hospitalization)
  Sender: FDA-Public Use
  Company Number: NL-JNJFOC-20230228886

PATIENT
  Age: 77 Year
  Sex: Female
  Weight: 59 kg

DRUGS (30)
  1. TECLISTAMAB [Suspect]
     Active Substance: TECLISTAMAB
     Indication: Plasma cell myeloma
     Dosage: WITH MOST RECENT DOSE ON 07-FEB-2023
     Route: 058
     Dates: start: 20221214
  2. DARATUMUMAB [Suspect]
     Active Substance: DARATUMUMAB
     Indication: Plasma cell myeloma
     Dosage: WITH MOST RECENT DOSE ON 07-FEB-2023
     Route: 058
     Dates: start: 20221213
  3. DEXAMETHASONE [Suspect]
     Active Substance: DEXAMETHASONE
     Indication: Plasma cell myeloma
     Dosage: WITH MOST RECENT DOSE ON 07-FEB-2023
     Route: 048
     Dates: start: 20230110
  4. CARBASPIRIN CALCIUM [Concomitant]
     Active Substance: CARBASPIRIN CALCIUM
     Indication: Tricuspid valve disease
     Route: 048
     Dates: start: 20150506
  5. HYDROCHLOROTHIAZIDE [Concomitant]
     Active Substance: HYDROCHLOROTHIAZIDE
     Indication: Hypertension
     Route: 048
     Dates: start: 20150506, end: 20230215
  6. CALCIUM CARBONATE\CHOLECALCIFEROL [Concomitant]
     Active Substance: CALCIUM CARBONATE\CHOLECALCIFEROL
     Indication: Osteoporosis
     Route: 048
     Dates: start: 20150821
  7. CLORAZEPATE DIPOTASSIUM [Concomitant]
     Active Substance: CLORAZEPATE DIPOTASSIUM
     Indication: Fibromyalgia
     Route: 048
     Dates: start: 20150824
  8. OXAZEPAM [Concomitant]
     Active Substance: OXAZEPAM
     Indication: Fibromyalgia
     Route: 048
     Dates: start: 20181112, end: 20230212
  9. BUDESONIDE [Concomitant]
     Active Substance: BUDESONIDE
     Indication: Rhinitis
     Route: 045
     Dates: start: 20181127
  10. OMEPRAZOLE [Concomitant]
     Active Substance: OMEPRAZOLE
     Indication: Prophylaxis
     Route: 048
     Dates: start: 20181127
  11. OMEPRAZOLE [Concomitant]
     Active Substance: OMEPRAZOLE
     Indication: Gastrooesophageal reflux disease
  12. VALACYCLOVIR HYDROCHLORIDE [Concomitant]
     Active Substance: VALACYCLOVIR HYDROCHLORIDE
     Indication: Antiviral prophylaxis
     Route: 048
     Dates: start: 20221213
  13. COTRIMOXAZOLE [Concomitant]
     Active Substance: SULFAMETHOXAZOLE\TRIMETHOPRIM
     Indication: Antiviral prophylaxis
     Route: 048
     Dates: start: 20221213
  14. FLUTICASONE [Concomitant]
     Active Substance: FLUTICASONE
     Indication: Otitis media
     Route: 045
     Dates: start: 20230112
  15. XYLOMETAZOLINE [Concomitant]
     Active Substance: XYLOMETAZOLINE
     Indication: Otitis media
     Route: 045
     Dates: start: 20230112
  16. NANOGAM [Concomitant]
     Active Substance: HUMAN IMMUNOGLOBULIN G
     Indication: Infection prophylaxis
     Route: 042
     Dates: start: 20230124
  17. NANOGAM [Concomitant]
     Active Substance: HUMAN IMMUNOGLOBULIN G
     Indication: Hypogammaglobulinaemia
  18. POTASSIUM CHLORIDE [Concomitant]
     Active Substance: POTASSIUM CHLORIDE
     Indication: Hypokalaemia
     Route: 048
     Dates: start: 20230131, end: 20230131
  19. POTASSIUM CHLORIDE [Concomitant]
     Active Substance: POTASSIUM CHLORIDE
     Route: 048
     Dates: start: 20230212, end: 20230212
  20. POTASSIUM CHLORIDE [Concomitant]
     Active Substance: POTASSIUM CHLORIDE
     Dosage: CONTINUOUS
     Route: 042
     Dates: start: 20230212, end: 20230215
  21. METHOXY POLYETHYLENE GLYCOL-EPOETIN BETA [Concomitant]
     Active Substance: METHOXY POLYETHYLENE GLYCOL-EPOETIN BETA
     Indication: Anaemia prophylaxis
     Route: 058
     Dates: start: 20230206
  22. SODIUM PHOSPHATE [Concomitant]
     Active Substance: SODIUM PHOSPHATE
     Indication: Hypophosphataemia
     Route: 048
     Dates: start: 20230213, end: 20230215
  23. NADROPARIN [Concomitant]
     Active Substance: NADROPARIN
     Indication: Thrombosis prophylaxis
     Route: 058
     Dates: start: 20230213, end: 20230215
  24. AMLODIPINE [Concomitant]
     Active Substance: AMLODIPINE BESYLATE
     Indication: Hypertension
     Route: 048
     Dates: start: 20230215
  25. AMLODIPINE [Concomitant]
     Active Substance: AMLODIPINE BESYLATE
     Route: 048
     Dates: start: 20230216
  26. ISOSORBIDE DINITRATE [Concomitant]
     Active Substance: ISOSORBIDE DINITRATE
     Indication: Tricuspid valve disease
     Route: 060
     Dates: start: 20171013
  27. MAGNESIUM [Concomitant]
     Active Substance: MAGNESIUM
     Indication: Muscle spasms
     Route: 048
     Dates: start: 20220101
  28. HERBALS\PLANTAGO OVATA LEAF [Concomitant]
     Active Substance: HERBALS\PLANTAGO OVATA LEAF
     Indication: Abnormal faeces
     Route: 048
     Dates: start: 20221110
  29. BECLOMETHASONE\FORMOTEROL [Concomitant]
     Active Substance: BECLOMETHASONE\FORMOTEROL
     Indication: Productive cough
     Dosage: 1
     Route: 055
     Dates: start: 20221125
  30. TIMOLOL [Concomitant]
     Active Substance: TIMOLOL
     Route: 047
     Dates: start: 20221129

REACTIONS (1)
  - COVID-19 [Recovering/Resolving]

NARRATIVE: CASE EVENT DATE: 20230211
